FAERS Safety Report 15439894 (Version 2)
Quarter: 2018Q4

REPORT INFORMATION
  Report Type: Spontaneous
  Country: AU (occurrence: AU)
  Receive Date: 20180928
  Receipt Date: 20181019
  Transmission Date: 20190204
  Serious: Yes (Death)
  Sender: FDA-Public Use
  Company Number: AU-ASTRAZENECA-2018SF20561

PATIENT
  Sex: Male

DRUGS (2)
  1. OSIMERTINIB. [Suspect]
     Active Substance: OSIMERTINIB
     Dosage: 80
     Route: 048
     Dates: start: 20171120, end: 20180801
  2. METFORMIN [Concomitant]
     Active Substance: METFORMIN HYDROCHLORIDE
     Indication: DIABETES MELLITUS
     Route: 048
     Dates: start: 20170112, end: 20170802

REACTIONS (1)
  - Metastases to meninges [Fatal]
